FAERS Safety Report 26195197 (Version 1)
Quarter: 2025Q4

REPORT INFORMATION
  Report Type: Spontaneous
  Country: US (occurrence: US)
  Receive Date: 20251224
  Receipt Date: 20251224
  Transmission Date: 20260117
  Serious: Yes (Hospitalization, Other)
  Sender: BRISTOL-MYERS SQUIBB COMPANY
  Company Number: US-BRISTOL-MYERS SQUIBB COMPANY-2025-171352

PATIENT
  Age: 54 Year
  Sex: Male

DRUGS (1)
  1. APIXABAN [Suspect]
     Active Substance: APIXABAN
     Indication: Coronary artery disease

REACTIONS (4)
  - Epistaxis [Unknown]
  - Subdural haematoma [Unknown]
  - Melaena [Unknown]
  - Off label use [Unknown]
